FAERS Safety Report 4396676-8 (Version None)
Quarter: 2004Q3

REPORT INFORMATION
  Report Type: 
  Country: None (occurrence: None)
  Receive Date: 20040709
  Receipt Date: 20040629
  Transmission Date: 20050211
  Serious: Yes (Other)
  Sender: FDA-Public Use
  Company Number: 2004221750JP

PATIENT

DRUGS (3)
  1. CLINDAMYCIN [Suspect]
     Indication: PNEUMONIA
  2. ROCEPHIN [Suspect]
     Indication: PNEUMONIA
  3. PANSPORIN (CEFOTIAM HYDROCHLORIDE) [Concomitant]

REACTIONS (2)
  - PNEUMONIA [None]
  - RENAL FAILURE ACUTE [None]
